FAERS Safety Report 6974864-1 (Version None)
Quarter: 2010Q3

REPORT INFORMATION
  Report Type: 
  Country: None (occurrence: None)
  Receive Date: 20100909
  Receipt Date: 20081215
  Transmission Date: 20110219
  Serious: No
  Sender: FDA-Public Use
  Company Number: US-WYE-H07246208

PATIENT
  Sex: Female
  Weight: 58.11 kg

DRUGS (2)
  1. PRISTIQ [Suspect]
     Indication: DEPRESSION
     Route: 048
     Dates: start: 20081208
  2. LOZOL [Concomitant]

REACTIONS (1)
  - FATIGUE [None]
